FAERS Safety Report 23573249 (Version 1)
Quarter: 2024Q1

REPORT INFORMATION
  Report Type: Spontaneous
  Country: JP (occurrence: JP)
  Receive Date: 20240228
  Receipt Date: 20240228
  Transmission Date: 20240410
  Serious: Yes (Hospitalization, Other)
  Sender: FDA-Public Use
  Company Number: JP-PBT-009042

PATIENT
  Age: 60 Year
  Sex: Male

DRUGS (2)
  1. TACROLIMUS [Interacting]
     Active Substance: TACROLIMUS
     Indication: Dermatomyositis
     Route: 065
  2. NIRMATRELVIR\RITONAVIR [Interacting]
     Active Substance: NIRMATRELVIR\RITONAVIR
     Indication: COVID-19
     Route: 048

REACTIONS (6)
  - Prinzmetal angina [Unknown]
  - Acute kidney injury [Recovering/Resolving]
  - Drug interaction [Unknown]
  - COVID-19 [Unknown]
  - Product use in unapproved indication [Unknown]
  - Immunosuppressant drug level increased [Recovered/Resolved]
